FAERS Safety Report 10362256 (Version 2)
Quarter: 2014Q3

REPORT INFORMATION
  Report Type: Spontaneous
  Country: JP (occurrence: JP)
  Receive Date: 20140805
  Receipt Date: 20140813
  Transmission Date: 20150326
  Serious: Yes (Hospitalization)
  Sender: FDA-Public Use
  Company Number: JP-ASTRAZENECA-2014SE55879

PATIENT
  Age: 63 Year
  Sex: Female

DRUGS (3)
  1. CRESTOR [Suspect]
     Active Substance: ROSUVASTATIN CALCIUM
     Indication: DYSLIPIDAEMIA
     Route: 048
     Dates: start: 20140327, end: 20140421
  2. UNSPECIFIED [Concomitant]
     Active Substance: UNSPECIFIED INGREDIENT
  3. MUCOSTA [Concomitant]
     Active Substance: REBAMIPIDE
     Dosage: DOSE UNKNOWN
     Route: 048

REACTIONS (6)
  - Nasopharyngitis [Recovering/Resolving]
  - Myalgia [Unknown]
  - Guillain-Barre syndrome [Unknown]
  - Myoglobin urine present [Unknown]
  - Blood calcium increased [Unknown]
  - Pain in extremity [Unknown]

NARRATIVE: CASE EVENT DATE: 20140404
